FAERS Safety Report 7885008-6 (Version None)
Quarter: 2011Q4

REPORT INFORMATION
  Report Type: 
  Country: None (occurrence: None)
  Receive Date: 20111102
  Receipt Date: 20111026
  Transmission Date: 20120403
  Serious: Yes (Other)
  Sender: FDA-Public Use
  Company Number: JP-PFIZER INC-2011025229

PATIENT
  Age: 74 Year
  Sex: Male

DRUGS (1)
  1. ZYVOX [Suspect]
     Indication: STAPHYLOCOCCAL INFECTION
     Dosage: 540 MG, 2X/DAY
     Route: 048
     Dates: start: 20101006, end: 20110131

REACTIONS (2)
  - RETINAL HAEMORRHAGE [None]
  - OPTIC NEUROPATHY [None]
